FAERS Safety Report 14180918 (Version 1)
Quarter: 2017Q4

REPORT INFORMATION
  Report Type: Spontaneous
  Country: US (occurrence: US)
  Receive Date: 20171108
  Receipt Date: 20171108
  Transmission Date: 20180321
  Serious: No
  Sender: FDA-Public Use
  Company Number: None

PATIENT
  Sex: Female

DRUGS (12)
  1. ARTICHOKE EXTRACT [Concomitant]
  2. NATURE-THROID [Concomitant]
     Active Substance: THYROID, PORCINE
  3. DIGESTIVE ENZYMES [Concomitant]
     Active Substance: UNSPECIFIED INGREDIENT
  4. OMEGA FISH OIL [Concomitant]
     Active Substance: FISH OIL\OMEGA-3 FATTY ACIDS
  5. POLYVIT [Concomitant]
     Active Substance: MINERALS\VITAMINS
  6. BETAINE HCL [Concomitant]
  7. VITAMIN C POWDER [Concomitant]
  8. BROMELAIN [Suspect]
     Active Substance: BROMELAINS
  9. CO-Q10 [Concomitant]
  10. KELP [Concomitant]
     Active Substance: KELP
  11. THALIUM [Suspect]
     Active Substance: THALLIUM
     Dates: start: 20170404, end: 20171030
  12. CITRACAL [Concomitant]
     Active Substance: CALCIUM CITRATE

REACTIONS (2)
  - Manufacturing materials issue [None]
  - Laboratory test abnormal [None]
